FAERS Safety Report 17022275 (Version 1)
Quarter: 2019Q4

REPORT INFORMATION
  Report Type: Spontaneous
  Country: US (occurrence: US)
  Receive Date: 20191008
  Receipt Date: 20191008
  Transmission Date: 20200122
  Serious: Yes (Other)
  Sender: FDA-Public Use
  Company Number: None

PATIENT
  Age: 72 Year
  Sex: Female
  Weight: 67.9 kg

DRUGS (6)
  1. ROMOSOZUMAB 210 MG [Suspect]
     Active Substance: ROMOSOZUMAB
     Indication: OSTEOPOROSIS
     Route: 058
     Dates: start: 20190829, end: 20190926
  2. MELOICAM PRN [Concomitant]
  3. ZADITOR [Concomitant]
     Active Substance: KETOTIFEN FUMARATE
  4. OPTHALMIC DROPS [Concomitant]
  5. METROGEL [Concomitant]
     Active Substance: METRONIDAZOLE
  6. ASPIRIN. [Concomitant]
     Active Substance: ASPIRIN

REACTIONS (6)
  - Injection site warmth [None]
  - Erythema [None]
  - Tachycardia [None]
  - Pyrexia [None]
  - Myalgia [None]
  - Hypotension [None]

NARRATIVE: CASE EVENT DATE: 20191003
